FAERS Safety Report 9213557 (Version 2)
Quarter: 2013Q4

REPORT INFORMATION
  Report Type: Spontaneous
  Country: US (occurrence: US)
  Receive Date: 20130405
  Receipt Date: 20131219
  Transmission Date: 20140711
  Serious: Yes (Other)
  Sender: FDA-Public Use
  Company Number: US-BAYER-2013-040319

PATIENT
  Age: 28 Year
  Sex: Female

DRUGS (6)
  1. YAZ [Suspect]
     Dosage: UNK
     Dates: start: 2001
  2. YASMIN [Suspect]
     Dosage: UNK
     Dates: start: 2001
  3. MOVIPREP [Concomitant]
     Dosage: UNK
     Dates: start: 20090706
  4. MAXALT [Concomitant]
     Indication: MIGRAINE
     Dosage: LONG TERM USE
  5. CLARITIN [Concomitant]
     Indication: SEASONAL ALLERGY
  6. DAYQUIL [DEXTROMET HBR,PARACET,PSEUDOEPH HCL] [Concomitant]
     Dosage: UNK
     Dates: start: 20090824

REACTIONS (4)
  - Gallbladder injury [None]
  - Cholecystitis [None]
  - Injury [None]
  - Pain [None]
